FAERS Safety Report 11831399 (Version 1)
Quarter: 2015Q4

REPORT INFORMATION
  Report Type: Spontaneous
  Country: US (occurrence: US)
  Receive Date: 20151214
  Receipt Date: 20151214
  Transmission Date: 20160305
  Serious: Yes (Hospitalization, Other)
  Sender: FDA-Public Use
  Company Number: US-ELI_LILLY_AND_COMPANY-US201512001736

PATIENT
  Age: 68 Year
  Sex: Male

DRUGS (4)
  1. RAMUCIRUMAB [Suspect]
     Active Substance: RAMUCIRUMAB
     Indication: ADENOSQUAMOUS CELL LUNG CANCER STAGE IV
     Dosage: UNK, UNKNOWN
     Route: 065
     Dates: start: 20150803, end: 20150914
  2. GEMZAR [Suspect]
     Active Substance: GEMCITABINE HYDROCHLORIDE
     Indication: ADENOSQUAMOUS CELL LUNG CANCER STAGE IV
     Dosage: UNK, UNKNOWN
     Route: 065
     Dates: start: 20141231, end: 20150107
  3. CARBOPLATIN. [Suspect]
     Active Substance: CARBOPLATIN
     Indication: ADENOSQUAMOUS CELL LUNG CANCER STAGE IV
     Dosage: UNK, UNKNOWN
     Route: 065
     Dates: start: 20141231, end: 20150107
  4. TAXOTERE [Suspect]
     Active Substance: DOCETAXEL
     Indication: ADENOSQUAMOUS CELL LUNG CANCER STAGE IV
     Dosage: UNK, UNKNOWN
     Route: 065
     Dates: start: 20150803, end: 20150914

REACTIONS (15)
  - Leukocytosis [Unknown]
  - Streptococcal urinary tract infection [Unknown]
  - Diarrhoea [Recovered/Resolved]
  - Tumour lysis syndrome [Recovered/Resolved]
  - Fatigue [Recovering/Resolving]
  - Enterococcal bacteraemia [Unknown]
  - Acute kidney injury [Recovered/Resolved]
  - Thrombocytopenia [Recovered/Resolved]
  - Normochromic normocytic anaemia [Unknown]
  - Renal failure [Unknown]
  - Staphylococcal bacteraemia [Unknown]
  - Nausea [Unknown]
  - Febrile neutropenia [Recovered/Resolved]
  - Malignant neoplasm progression [Not Recovered/Not Resolved]
  - Vomiting [Unknown]

NARRATIVE: CASE EVENT DATE: 20150320
